FAERS Safety Report 9351391 (Version 1)
Quarter: 2013Q2

REPORT INFORMATION
  Report Type: Spontaneous
  Country: FR (occurrence: FR)
  Receive Date: 20130617
  Receipt Date: 20130617
  Transmission Date: 20140414
  Serious: Yes (Hospitalization)
  Sender: FDA-Public Use
  Company Number: FR-UCBSA-088224

PATIENT
  Age: 61 Year
  Sex: Male

DRUGS (8)
  1. KEPPRA [Suspect]
     Dosage: DAILY DOSE: 2 G
     Route: 048
  2. TARCEVA [Suspect]
     Indication: LUNG NEOPLASM MALIGNANT
     Dosage: DAILY DOSE: 100 MG
     Route: 048
     Dates: start: 201206, end: 20130222
  3. PREDNISOLONE [Suspect]
     Indication: LUNG NEOPLASM MALIGNANT
     Dosage: DAILY DOSE: 80 MG
     Route: 048
  4. PREVISCAN [Suspect]
     Dosage: ACCORDING TO INR
     Route: 048
     Dates: end: 20130228
  5. PERINDOPRIL [Suspect]
     Dosage: DAILY DOSE: 2.5 MG
     Route: 048
  6. ACEBUTOLOL [Suspect]
     Dosage: DAILY DOSE: 200 MG
     Route: 048
  7. FLUOXETINE [Suspect]
     Dosage: DAILY DOSE: 20 MG
     Route: 048
  8. KARDEGIC [Suspect]
     Dosage: DAILY DOSE: 75 MG
     Route: 048

REACTIONS (3)
  - Folliculitis [Recovered/Resolved]
  - Fall [Unknown]
  - Asthenia [Unknown]
